FAERS Safety Report 8305716-2 (Version None)
Quarter: 2012Q2

REPORT INFORMATION
  Report Type: 
  Country: None (occurrence: None)
  Receive Date: 20120423
  Receipt Date: 20120405
  Transmission Date: 20120825
  Serious: No
  Sender: FDA-Public Use
  Company Number: US-BAYER-2012-033804

PATIENT
  Sex: Female

DRUGS (2)
  1. CLIMARA [Suspect]
     Dosage: UNK
     Dates: start: 20000101
  2. CLIMARA [Suspect]
     Dosage: UNK
     Dates: start: 19980101, end: 20000101

REACTIONS (6)
  - DERMATITIS CONTACT [None]
  - LIP SWELLING [None]
  - APPLICATION SITE RASH [None]
  - LIP HAEMORRHAGE [None]
  - APPLICATION SITE ERYTHEMA [None]
  - CHEILITIS [None]
